FAERS Safety Report 15356537 (Version 1)
Quarter: 2018Q3

REPORT INFORMATION
  Report Type: Report from Study
  Country: JP (occurrence: JP)
  Receive Date: 20180906
  Receipt Date: 20180906
  Transmission Date: 20181010
  Serious: Yes (Other)
  Sender: FDA-Public Use
  Company Number: JP-BAYER-2018-164181

PATIENT
  Age: 64 Year
  Sex: Male

DRUGS (2)
  1. ZYLORIC [Concomitant]
     Active Substance: ALLOPURINOL
  2. ACETYLSALICYLIC ACID({=100 MG) [Suspect]
     Active Substance: ASPIRIN
     Indication: COLON NEOPLASM
     Dosage: 100 MG, QD
     Route: 048
     Dates: start: 20170101, end: 20171023

REACTIONS (1)
  - Ileal ulcer [Recovered/Resolved]

NARRATIVE: CASE EVENT DATE: 20171023
